FAERS Safety Report 5190508-6 (Version None)
Quarter: 2006Q4

REPORT INFORMATION
  Report Type: 
  Country: None (occurrence: None)
  Receive Date: 20061222
  Receipt Date: 20061215
  Transmission Date: 20070319
  Serious: Yes (Hospitalization)
  Sender: FDA-Public Use
  Company Number: FR-GLAXOSMITHKLINE-B0450904A

PATIENT
  Age: 36 Year
  Sex: Male
  Weight: 80 kg

DRUGS (6)
  1. TELZIR [Suspect]
     Indication: HIV INFECTION
     Dosage: 700MG TWICE PER DAY
     Route: 048
     Dates: start: 20060419, end: 20061116
  2. NORVIR [Suspect]
     Indication: HIV INFECTION
     Dosage: 100MG TWICE PER DAY
     Route: 048
     Dates: start: 20061109, end: 20061116
  3. TRUVADA [Suspect]
     Indication: HIV INFECTION
     Dosage: 1UNIT PER DAY
     Route: 048
     Dates: start: 20060419, end: 20061116
  4. AZADOSE [Suspect]
     Indication: OPPORTUNISTIC INFECTION PROPHYLAXIS
     Dosage: 600MG TWICE PER DAY
     Route: 048
     Dates: start: 20061110, end: 20061110
  5. ZELITREX [Concomitant]
     Route: 065
  6. BACTRIM [Concomitant]
     Route: 065

REACTIONS (25)
  - ABDOMINAL PAIN [None]
  - ALANINE AMINOTRANSFERASE INCREASED [None]
  - ANAEMIA [None]
  - ASPARTATE AMINOTRANSFERASE INCREASED [None]
  - ASTHENIA [None]
  - BLOOD ALKALINE PHOSPHATASE INCREASED [None]
  - BLOOD CREATININE INCREASED [None]
  - CHOLECYSTITIS [None]
  - CYTOLYTIC HEPATITIS [None]
  - DERMATITIS EXFOLIATIVE [None]
  - EOSINOPHILIA [None]
  - FATIGUE [None]
  - GAMMA-GLUTAMYLTRANSFERASE INCREASED [None]
  - HISTIOCYTOSIS HAEMATOPHAGIC [None]
  - HYPERSENSITIVITY [None]
  - INFLAMMATION [None]
  - JAUNDICE [None]
  - LEUKOCYTOSIS [None]
  - LYMPHOPENIA [None]
  - MALAISE [None]
  - OEDEMA PERIPHERAL [None]
  - PRURITUS GENERALISED [None]
  - PYREXIA [None]
  - RASH [None]
  - RETICULOCYTE COUNT DECREASED [None]
